FAERS Safety Report 6574109-0 (Version None)
Quarter: 2010Q1

REPORT INFORMATION
  Report Type: 
  Country: None (occurrence: None)
  Receive Date: 20100208
  Receipt Date: 20100201
  Transmission Date: 20100710
  Serious: Yes (Death)
  Sender: FDA-Public Use
  Company Number: BE-ABBOTT-10P-013-0619974-00

PATIENT
  Sex: Male
  Weight: 122 kg

DRUGS (2)
  1. LUCRIN TRIDEPOT 11.25 MG [Suspect]
     Indication: PROSTATE CANCER
     Dates: start: 20071112
  2. BICALUTAMIDE [Concomitant]
     Indication: DRUG USE FOR UNKNOWN INDICATION
     Dates: start: 20071112, end: 20071212

REACTIONS (1)
  - PERITONITIS [None]
